FAERS Safety Report 4638286-0 (Version None)
Quarter: 2005Q2

REPORT INFORMATION
  Report Type: 
  Country: None (occurrence: None)
  Receive Date: 20050415
  Receipt Date: 20050328
  Transmission Date: 20051028
  Serious: Yes (Life-Threatening)
  Sender: FDA-Public Use
  Company Number: JP_030200419

PATIENT
  Age: 65 Year
  Sex: Male
  Weight: 48 kg

DRUGS (5)
  1. GEMZAR [Suspect]
     Indication: PANCREATIC CARCINOMA
     Dosage: 1400 MG
     Dates: start: 20021209, end: 20030120
  2. BETAMETHASONE ACETATE [Concomitant]
  3. KYTRIL [Concomitant]
  4. ULCDERLMIN (SUCRALFATE) [Concomitant]
  5. ZOLPIDEM TARTRATE [Concomitant]

REACTIONS (1)
  - INTERSTITIAL LUNG DISEASE [None]
